FAERS Safety Report 7713100-5 (Version None)
Quarter: 2011Q3

REPORT INFORMATION
  Report Type: 
  Country: None (occurrence: None)
  Receive Date: 20110822
  Receipt Date: 20110805
  Transmission Date: 20111222
  Serious: Yes (Death, Other)
  Sender: FDA-Public Use
  Company Number: 2011MA011505

PATIENT
  Age: 45 Year
  Sex: Male

DRUGS (3)
  1. 3,4-METHYLENEDIOXMETHAMPHETAMINE (NO PREF. NAME) [Suspect]
  2. VENLAFAXINE [Suspect]
  3. PAREGORIC LIQUID USP (ALPHARMA) (PAREGORIC) [Suspect]

REACTIONS (1)
  - OVERDOSE [None]
